FAERS Safety Report 10380903 (Version 1)
Quarter: 2014Q1

REPORT INFORMATION
  Report Type: Spontaneous
  Country: US (occurrence: None)
  Receive Date: 20140306
  Receipt Date: 20140306
  Transmission Date: 20141002
  Serious: Yes (Other)
  Sender: FDA-Public Use
  Company Number: 163-21880-13072806

PATIENT
  Age: 60 Year
  Sex: Male
  Weight: 83.92 kg

DRUGS (9)
  1. REVLIMID (LENALIDOMIDE) (15 MILLIGRAM, CAPSULES) [Suspect]
     Indication: PLASMA CELL MYELOMA
     Route: 048
     Dates: start: 20130401
  2. COREG (CARVEDILOL) [Concomitant]
  3. PRANDIN (REPAGLINIDE) [Concomitant]
  4. ISOSORBIDE MONONITRATE (ISOSORBIDE MONONITRATE) [Concomitant]
  5. HYDROCHLOROTHIAZIDE (HYDROCHLOROTHIAZIDE) [Concomitant]
  6. VELCADE (IBORTEZOMIB) [Concomitant]
  7. GENTAMICIN (GENTAMICIN) [Concomitant]
  8. JANUVIA (SITAGLIPTIN PHOSPHATE) [Concomitant]
  9. PHOSLO (CALCIUM ACETATE) [Concomitant]

REACTIONS (2)
  - Renal failure [None]
  - Kidney infection [None]
